FAERS Safety Report 12835581 (Version 2)
Quarter: 2016Q4

REPORT INFORMATION
  Report Type: Spontaneous
  Country: IT (occurrence: IT)
  Receive Date: 20161011
  Receipt Date: 20161028
  Transmission Date: 20170207
  Serious: Yes (Death, Hospitalization, Disabling)
  Sender: FDA-Public Use
  Company Number: IT-MUNDIPHARMA DS AND PHARMACOVIGILANCE-GBR-2016-0040836

PATIENT
  Age: 53 Year
  Sex: Female
  Weight: 61 kg

DRUGS (6)
  1. RANITIDINE. [Concomitant]
     Active Substance: RANITIDINE
     Dosage: UNK
     Dates: start: 20160421
  2. CLEXANE [Concomitant]
     Active Substance: ENOXAPARIN SODIUM
     Dosage: UNK
     Dates: start: 20160505
  3. IBUPROFEN. [Concomitant]
     Active Substance: IBUPROFEN
     Dosage: UNK
     Dates: start: 20100421
  4. TARGIN [Suspect]
     Active Substance: NALOXONE HYDROCHLORIDE\OXYCODONE HYDROCHLORIDE
     Indication: PAIN IN EXTREMITY
     Route: 048
  5. LDK378 (CERITINIB) [Concomitant]
     Indication: NON-SMALL CELL LUNG CANCER
     Dosage: 300 MG, DAILY
     Route: 048
     Dates: start: 20160427, end: 20160624
  6. NIVOLUMAB COMP-NIVOL+SOLINJ (NIVOLUMAB) [Concomitant]
     Indication: NON-SMALL CELL LUNG CANCER
     Dosage: 180 MG/KG, UNK
     Route: 042
     Dates: start: 20160427, end: 20160622

REACTIONS (5)
  - Pulmonary oedema [Fatal]
  - Epilepsy [Not Recovered/Not Resolved]
  - Asthenia [Not Recovered/Not Resolved]
  - Vomiting [Recovered/Resolved]
  - Lethargy [Not Recovered/Not Resolved]

NARRATIVE: CASE EVENT DATE: 20160618
